FAERS Safety Report 14466259 (Version 2)
Quarter: 2019Q2

REPORT INFORMATION
  Report Type: Spontaneous
  Country: FR (occurrence: FR)
  Receive Date: 20180131
  Receipt Date: 20190522
  Transmission Date: 20190711
  Serious: Yes (Other)
  Sender: FDA-Public Use
  Company Number: FR-AUROBINDO-AUR-APL-2018-002912

PATIENT

DRUGS (2)
  1. PRAZEPAM [Concomitant]
     Active Substance: PRAZEPAM
     Indication: ANOREXIA NERVOSA
     Dosage: INCONNUE ()
     Route: 048
     Dates: start: 201610, end: 201706
  2. SERTRALINE [Suspect]
     Active Substance: SERTRALINE HYDROCHLORIDE
     Indication: ANOREXIA NERVOSA
     Dosage: 50 MG, UNK
     Route: 048
     Dates: start: 20161102, end: 20171107

REACTIONS (1)
  - Transaminases increased [Recovered/Resolved]

NARRATIVE: CASE EVENT DATE: 20161108
